FAERS Safety Report 6737568-6 (Version None)
Quarter: 2010Q2

REPORT INFORMATION
  Report Type: 
  Country: None (occurrence: None)
  Receive Date: 20100521
  Receipt Date: 20100521
  Transmission Date: 20101027
  Serious: No
  Sender: FDA-Public Use
  Company Number: None

PATIENT
  Age: 60 Year
  Sex: Female
  Weight: 77.5651 kg

DRUGS (7)
  1. AROMASIN [Suspect]
     Indication: BREAST CANCER METASTATIC
     Dosage: 25 MG DAILY PO
     Route: 048
     Dates: start: 20100419, end: 20100520
  2. SUTENT [Suspect]
     Indication: BREAST CANCER METASTATIC
     Dosage: 25 MG DAILY PO
     Route: 048
     Dates: start: 20100419, end: 20100520
  3. MICARDIS HCT [Concomitant]
  4. BYSTOLIC [Concomitant]
  5. HYTRIN [Concomitant]
  6. ARIXTRA [Concomitant]
  7. SUTENT [Concomitant]

REACTIONS (3)
  - BLOOD CHOLESTEROL INCREASED [None]
  - BLOOD TRIGLYCERIDES INCREASED [None]
  - HIGH DENSITY LIPOPROTEIN DECREASED [None]
